FAERS Safety Report 24202244 (Version 3)
Quarter: 2024Q4

REPORT INFORMATION
  Report Type: Spontaneous
  Country: IT (occurrence: IT)
  Receive Date: 20240812
  Receipt Date: 20241025
  Transmission Date: 20250115
  Serious: Yes (Hospitalization, Other)
  Sender: SANDOZ
  Company Number: IT-SA-BI2014BI60721GD

PATIENT
  Age: 45 Month
  Sex: Female

DRUGS (5)
  1. CETIRIZINE HYDROCHLORIDE [Suspect]
     Active Substance: CETIRIZINE HYDROCHLORIDE
     Indication: Tonsillitis
     Dosage: DOSE DESCRIPTION : UNK UNK,UNK
     Route: 065
  2. ACETAMINOPHEN\CHLORPHENIRAMINE MALEATE [Suspect]
     Active Substance: ACETAMINOPHEN\CHLORPHENIRAMINE MALEATE
     Indication: Tonsillitis
     Dosage: DOSE DESCRIPTION : UNK UNK,UNK
     Route: 065
  3. FLUARIX NOS [Suspect]
     Active Substance: INFLUENZA VIRUS VACCINE
     Indication: Immunisation
     Dosage: UNK
     Route: 065
  4. LEVODROPROPIZINE [Suspect]
     Active Substance: LEVODROPROPIZINE
     Indication: Tonsillitis
     Dosage: DOSE DESCRIPTION : UNK UNK,UNK
     Route: 065
  5. ACETAMINOPHEN\CHLORPHENIRAMINE\FEPRAZONE\PHENYLPROPANOLAMINE [Suspect]
     Active Substance: ACETAMINOPHEN\CHLORPHENIRAMINE\FEPRAZONE\PHENYLPROPANOLAMINE
     Indication: Tonsillitis
     Dosage: UNK
     Route: 065

REACTIONS (3)
  - Eye disorder [Recovered/Resolved]
  - Stevens-Johnson syndrome [Recovered/Resolved]
  - Oral disorder [Recovered/Resolved]
